FAERS Safety Report 10050498 (Version 1)
Quarter: 2014Q2

REPORT INFORMATION
  Report Type: Spontaneous
  Country: US (occurrence: US)
  Receive Date: 20140401
  Receipt Date: 20140401
  Transmission Date: 20141212
  Serious: No
  Sender: FDA-Public Use
  Company Number: US-ASTRAZENECA-2013SE86410

PATIENT
  Sex: Male

DRUGS (2)
  1. NEXIUM [Suspect]
     Indication: GASTROOESOPHAGEAL REFLUX DISEASE
     Route: 048
  2. NEXIUM [Suspect]
     Indication: GASTROOESOPHAGEAL REFLUX DISEASE
     Route: 048

REACTIONS (16)
  - Eating disorder [Unknown]
  - Muscle spasms [Unknown]
  - Gastric disorder [Unknown]
  - Nightmare [Unknown]
  - Dyspepsia [Unknown]
  - Hiatus hernia [Unknown]
  - Diabetes mellitus [Unknown]
  - Dyspnoea [Unknown]
  - Prostatic disorder [Unknown]
  - Malaise [Unknown]
  - Abdominal distension [Unknown]
  - Abdominal discomfort [Unknown]
  - Drug dose omission [Unknown]
  - Expired product administered [Unknown]
  - Drug ineffective [Unknown]
  - Off label use [Unknown]
